FAERS Safety Report 21014099 (Version 1)
Quarter: 2022Q2

REPORT INFORMATION
  Report Type: Spontaneous
  Country: US (occurrence: US)
  Receive Date: 20220627
  Receipt Date: 20220627
  Transmission Date: 20220721
  Serious: No
  Sender: FDA-Public Use
  Company Number: US-SA-SAC20220624000921

PATIENT
  Age: 64 Year
  Sex: Female

DRUGS (27)
  1. DUPIXENT [Suspect]
     Active Substance: DUPILUMAB
     Indication: Asthma
     Dosage: 200 MG, QOW
     Route: 058
  2. DUPIXENT [Suspect]
     Active Substance: DUPILUMAB
     Indication: Hypogammaglobulinaemia
  3. LIDOCAINE [Concomitant]
     Active Substance: LIDOCAINE
     Indication: Pain
  4. EPINEPHRINE [Concomitant]
     Active Substance: EPINEPHRINE
  5. DIPHENHYDRAMINE [Concomitant]
     Active Substance: DIPHENHYDRAMINE
  6. ACETAMINOPHEN [Concomitant]
     Active Substance: ACETAMINOPHEN
     Indication: Pain
  7. XEMBIFY [Concomitant]
     Active Substance: HUMAN IMMUNOGLOBULIN G
  8. MUCINEX [Concomitant]
     Active Substance: GUAIFENESIN
  9. GAVISCON [ALGELDRATE;ALGINIC ACID;MAGNESIUM TRISILICATE;SODIUM BICARBO [Concomitant]
  10. GLUCOSAMINE + CHONDORITIN [Concomitant]
  11. ALBUTEROL SULFATE [Concomitant]
     Active Substance: ALBUTEROL SULFATE
     Indication: Asthma
     Dosage: 90 MCG
  12. RELPAX [Concomitant]
     Active Substance: ELETRIPTAN HYDROBROMIDE
  13. AMLODIPINE BESYLATE [Concomitant]
     Active Substance: AMLODIPINE BESYLATE
  14. CALCIUM [Concomitant]
     Active Substance: CALCIUM
  15. VITAMINS NOS [Concomitant]
     Active Substance: VITAMINS
  16. PROBIOTIC ACIDOPHILUS [LACTOBACILLUS ACIDOPHILUS] [Concomitant]
  17. LEVALBUTEROL HYDROCHLORIDE [Concomitant]
     Active Substance: LEVALBUTEROL HYDROCHLORIDE
  18. ADVAIR HFA [Concomitant]
     Active Substance: FLUTICASONE PROPIONATE\SALMETEROL XINAFOATE
  19. SIMVASTATIN [Concomitant]
     Active Substance: SIMVASTATIN
  20. EFFEXOR XR [Concomitant]
     Active Substance: VENLAFAXINE HYDROCHLORIDE
     Indication: Pain
     Dosage: 75MG
  21. OMEPRAZOLE [Concomitant]
     Active Substance: OMEPRAZOLE
  22. TOPIRAMATE [Concomitant]
     Active Substance: TOPIRAMATE
     Indication: Pain
  23. PRIMIDONE [Concomitant]
     Active Substance: PRIMIDONE
  24. LEVOTHYROXINE SODIUM [Concomitant]
     Active Substance: LEVOTHYROXINE SODIUM
  25. MELOXICAM [Concomitant]
     Active Substance: MELOXICAM
  26. TRAMADOL HCL [Concomitant]
     Active Substance: TRAMADOL HYDROCHLORIDE
     Indication: Pain
     Dosage: 300MG
  27. GRAMICIDIN\NEOMYCIN SULFATE\POLYMYXIN B SULFATE [Concomitant]
     Active Substance: GRAMICIDIN\NEOMYCIN SULFATE\POLYMYXIN B SULFATE

REACTIONS (2)
  - Blister infected [Unknown]
  - Product use in unapproved indication [Unknown]
